FAERS Safety Report 16699237 (Version 6)
Quarter: 2020Q1

REPORT INFORMATION
  Report Type: Report from Study
  Country: GB (occurrence: GB)
  Receive Date: 20190813
  Receipt Date: 20200325
  Transmission Date: 20200409
  Serious: Yes (Hospitalization)
  Sender: FDA-Public Use
  Company Number: GB-BRISTOL-MYERS SQUIBB COMPANY-BMS-2019-078259

PATIENT
  Age: 62 Year
  Sex: Male
  Weight: 103.3 kg

DRUGS (2)
  1. IPILIMUMAB [Suspect]
     Active Substance: IPILIMUMAB
     Indication: MALIGNANT MELANOMA
     Dosage: 310 MILLIGRAM
     Route: 042
     Dates: start: 20161125
  2. NIVOLUMAB [Suspect]
     Active Substance: NIVOLUMAB
     Indication: MALIGNANT MELANOMA
     Dosage: 102.6 MILLIGRAM
     Route: 042
     Dates: start: 20161125

REACTIONS (1)
  - Non-cardiac chest pain [Recovered/Resolved]

NARRATIVE: CASE EVENT DATE: 20161127
